FAERS Safety Report 19465598 (Version 13)
Quarter: 2022Q3

REPORT INFORMATION
  Report Type: Report from Study
  Country: MX (occurrence: MX)
  Receive Date: 20210625
  Receipt Date: 20220826
  Transmission Date: 20221027
  Serious: Yes (Other)
  Sender: FDA-Public Use
  Company Number: NVSC2021MX140143

PATIENT
  Age: 44 Year
  Sex: Female
  Weight: 72 kg

DRUGS (3)
  1. TASIGNA [Suspect]
     Active Substance: NILOTINIB
     Indication: Chronic myeloid leukaemia
     Dosage: 800 MG, QD
     Route: 048
  2. TASIGNA [Suspect]
     Active Substance: NILOTINIB
     Dosage: UNK DF, BID (2 IN THE MORNING AND AT NIGHT)
     Route: 048
     Dates: start: 202104
  3. TASIGNA [Suspect]
     Active Substance: NILOTINIB
     Dosage: UNK
     Route: 048

REACTIONS (21)
  - Gastric infection [Recovered/Resolved]
  - Pyrexia [Recovered/Resolved]
  - Diarrhoea [Recovered/Resolved]
  - Abdominal pain [Recovered/Resolved]
  - Asphyxia [Recovering/Resolving]
  - Depressed mood [Unknown]
  - Phobia of driving [Unknown]
  - Hypoaesthesia [Unknown]
  - Abdominal discomfort [Unknown]
  - Depression [Unknown]
  - Weight increased [Unknown]
  - Influenza [Unknown]
  - Illness [Unknown]
  - Malaise [Unknown]
  - COVID-19 [Unknown]
  - Feeling abnormal [Unknown]
  - Fatigue [Unknown]
  - Anaesthesia [Unknown]
  - Mental disorder [Unknown]
  - Weight decreased [Unknown]
  - Inappropriate schedule of product administration [Unknown]

NARRATIVE: CASE EVENT DATE: 20210616
